APPROVED DRUG PRODUCT: PHENYLEPHRINE HYDROCHLORIDE
Active Ingredient: PHENYLEPHRINE HYDROCHLORIDE
Strength: 100MG/10ML (10MG/ML)
Dosage Form/Route: SOLUTION;INTRAVENOUS
Application: A213237 | Product #003
Applicant: ACCORD HEALTHCARE INC
Approved: Jul 1, 2020 | RLD: No | RS: No | Type: DISCN